FAERS Safety Report 13981306 (Version 4)
Quarter: 2019Q1

REPORT INFORMATION
  Report Type: Spontaneous
  Country: US (occurrence: US)
  Receive Date: 20170918
  Receipt Date: 20190214
  Transmission Date: 20190417
  Serious: No
  Sender: FDA-Public Use
  Company Number: US-PFIZER INC-2017395679

PATIENT
  Age: 53 Year
  Sex: Female

DRUGS (3)
  1. REVATIO [Suspect]
     Active Substance: SILDENAFIL CITRATE
     Dosage: 40 MG, TWICE DAILY
  2. REVATIO [Suspect]
     Active Substance: SILDENAFIL CITRATE
     Dosage: 40 MG, 3X/DAY (2 TABLET PO TID) (QUANTITY FOR 90 DAYS: 540)
     Route: 048
  3. REVATIO [Suspect]
     Active Substance: SILDENAFIL CITRATE
     Indication: COR PULMONALE
     Dosage: UNK

REACTIONS (4)
  - Prescribed overdose [Unknown]
  - Product use in unapproved indication [Unknown]
  - Headache [Unknown]
  - Product use issue [Unknown]
